FAERS Safety Report 9498284 (Version 1)
Quarter: 2013Q3

REPORT INFORMATION
  Report Type: Spontaneous
  Country: DE (occurrence: None)
  Receive Date: 20130830
  Receipt Date: 20130830
  Transmission Date: 20140515
  Serious: Yes (Other)
  Sender: FDA-Public Use
  Company Number: CO-OR-DE-2013-025

PATIENT
  Age: 10 Month
  Sex: Female

DRUGS (1)
  1. PREDNISOLONE [Suspect]
     Indication: INFANTILE SPASMS
     Dosage: 4 X 10 MG/DAY

REACTIONS (2)
  - Benign intracranial hypertension [None]
  - Convulsion [None]
